FAERS Safety Report 6932327-3 (Version None)
Quarter: 2010Q3

REPORT INFORMATION
  Report Type: 
  Country: None (occurrence: None)
  Receive Date: 20100819
  Receipt Date: 20100803
  Transmission Date: 20110219
  Serious: Yes (Hospitalization)
  Sender: FDA-Public Use
  Company Number: US-BAYER-200943863NA

PATIENT
  Age: 29 Year
  Sex: Female
  Weight: 54 kg

DRUGS (12)
  1. YASMIN [Suspect]
     Indication: OVARIAN CYST
     Route: 048
     Dates: start: 20031201
  2. DROSPIRENONE AND EHTINYL ESTRADIOL [Concomitant]
     Indication: OVARIAN CYST
     Route: 048
     Dates: start: 20080718, end: 20090101
  3. SINGULAIR [Concomitant]
     Indication: ASTHMA
     Dosage: ALWAYS, ON + OFF FOR 20 YEARS
  4. CLARITIN [Concomitant]
     Indication: ASTHMA
     Dosage: ALWAYS, ON + OFF FOR 20 YEARS
  5. ADVAIR DISKUS 100/50 [Concomitant]
     Indication: ASTHMA
     Dosage: ALWAYS, ON + OFF FOR 20 YEARS
  6. NSAIDS [Concomitant]
  7. LEXAPRO [Concomitant]
     Indication: DEPRESSION
     Dosage: UNIT DOSE: 10 MG
  8. ALBUTEROL SULATE [Concomitant]
     Route: 055
  9. NEXIUM [Concomitant]
  10. CIMETIDINE [Concomitant]
  11. FLUCONAZOLE [Concomitant]
  12. CEPHALEXIN [Concomitant]

REACTIONS (3)
  - ABDOMINAL PAIN [None]
  - CHOLECYSTITIS [None]
  - INFECTION [None]
